FAERS Safety Report 4928086-6 (Version None)
Quarter: 2006Q1

REPORT INFORMATION
  Report Type: 
  Country: None (occurrence: None)
  Receive Date: 20060223
  Receipt Date: 20060213
  Transmission Date: 20060701
  Serious: Yes (Other)
  Sender: FDA-Public Use
  Company Number: EM2005-0704

PATIENT
  Age: 65 Year
  Sex: Male
  Weight: 64.7 kg

DRUGS (19)
  1. PROLEUKIN [Suspect]
     Indication: METASTATIC RENAL CELL CARCINOMA
     Dosage: 18 MIU, SUBCUTAN.
     Route: 058
     Dates: start: 20010514, end: 20010528
  2. PROLEUKIN [Suspect]
     Indication: METASTATIC RENAL CELL CARCINOMA
     Dosage: 18 MIU, SUBCUTAN.
     Route: 058
     Dates: start: 20010615, end: 20010723
  3. PROLEUKIN [Suspect]
     Indication: METASTATIC RENAL CELL CARCINOMA
     Dosage: 18 MIU, SUBCUTAN.
     Route: 058
     Dates: start: 20010618, end: 20010727
  4. PROLEUKIN [Suspect]
     Indication: METASTATIC RENAL CELL CARCINOMA
     Dosage: 18 MIU, SUBCUTAN.
     Route: 058
     Dates: start: 20010727, end: 20010806
  5. PROLEUKIN [Suspect]
     Indication: METASTATIC RENAL CELL CARCINOMA
     Dosage: 18 MIU, SUBCUTAN.
     Route: 058
     Dates: start: 20010824, end: 20010907
  6. PROLEUKIN [Suspect]
     Indication: METASTATIC RENAL CELL CARCINOMA
     Dosage: 18 MIU, SUBCUTAN.
     Route: 058
     Dates: start: 20010831, end: 20010907
  7. HISTAMINE DIHYDROCHLORIDE (HISTAMINE HYDROCHLORIDE) [Suspect]
     Indication: METASTATIC RENAL CELL CARCINOMA
     Dosage: 1 MG, BID, SUBCUTAN.
     Route: 058
  8. ENALAPRIL MALEATE [Concomitant]
  9. MORPHINE [Concomitant]
  10. DIAZEPAM [Concomitant]
  11. METOCLOPRAMIDE [Concomitant]
  12. ACETAMINOPHEN [Concomitant]
  13. LOPERAMIDE HCL [Concomitant]
  14. CODEINE (CODEINE) [Concomitant]
  15. PROLEUKIN [Suspect]
  16. PROLEUKIN [Suspect]
  17. PROLEUKIN [Suspect]
  18. PROLEUKIN [Suspect]
  19. PROLEUKIN [Suspect]

REACTIONS (6)
  - AMNESIA [None]
  - BEDRIDDEN [None]
  - DIARRHOEA [None]
  - DYSPNOEA [None]
  - FATIGUE [None]
  - VOMITING [None]
